FAERS Safety Report 5746904-9 (Version None)
Quarter: 2008Q2

REPORT INFORMATION
  Report Type: 
  Country: None (occurrence: None)
  Receive Date: 20080522
  Receipt Date: 20080512
  Transmission Date: 20081010
  Serious: Yes (Death, Other)
  Sender: FDA-Public Use
  Company Number: US-PFIZER INC-2008012925

PATIENT
  Sex: Male
  Weight: 136 kg

DRUGS (2)
  1. BEXTRA [Suspect]
     Indication: RHEUMATOID ARTHRITIS
     Route: 048
  2. BEXTRA [Suspect]
     Indication: BACK PAIN

REACTIONS (1)
  - MYOCARDIAL INFARCTION [None]
